FAERS Safety Report 14330828 (Version 1)
Quarter: 2017Q4

REPORT INFORMATION
  Report Type: Report from Study
  Country: US (occurrence: US)
  Receive Date: 20171228
  Receipt Date: 20171228
  Transmission Date: 20180321
  Serious: Yes (Other)
  Sender: FDA-Public Use
  Company Number: PHEH2017US041853

PATIENT
  Sex: Female

DRUGS (2)
  1. CYCLOSPORIN [Suspect]
     Active Substance: CYCLOSPORINE
     Indication: PSORIASIS
     Dosage: 2 DF, QD
     Route: 065
  2. COSENTYX [Suspect]
     Active Substance: SECUKINUMAB
     Indication: PSORIASIS
     Dosage: 300 MG, QMO
     Route: 058

REACTIONS (5)
  - Arthralgia [Unknown]
  - Diarrhoea [Unknown]
  - Ligament sprain [Unknown]
  - Age-related macular degeneration [Unknown]
  - Abdominal discomfort [Unknown]
